FAERS Safety Report 21775438 (Version 1)
Quarter: 2022Q4

REPORT INFORMATION
  Report Type: Spontaneous
  Country: US (occurrence: US)
  Receive Date: 20221226
  Receipt Date: 20221226
  Transmission Date: 20230113
  Serious: No
  Sender: FDA-Public Use
  Company Number: US-BIOVITRUM-2022US15202

PATIENT
  Sex: Female
  Weight: 6 kg

DRUGS (2)
  1. SYNAGIS [Suspect]
     Active Substance: PALIVIZUMAB
     Indication: Antiviral prophylaxis
     Dates: start: 202207
  2. POLY-VI-FLOR [Concomitant]
     Dosage: 0.25 MG/ML DROPS

REACTIONS (2)
  - Illness [Unknown]
  - Nasopharyngitis [Unknown]
